FAERS Safety Report 24426761 (Version 1)
Quarter: 2024Q4

REPORT INFORMATION
  Report Type: Spontaneous
  Country: HR (occurrence: HR)
  Receive Date: 20241011
  Receipt Date: 20241011
  Transmission Date: 20250114
  Serious: Yes (Other)
  Sender: TEVA
  Company Number: None

PATIENT
  Sex: Female

DRUGS (1)
  1. AZITHROMYCIN [Suspect]
     Active Substance: AZITHROMYCIN
     Indication: Pneumonia
     Dosage: UNK, AZIMED
     Route: 048
     Dates: start: 2024

REACTIONS (11)
  - Hallucination [Unknown]
  - Nausea [Unknown]
  - Dyspnoea [Unknown]
  - Generalised oedema [Unknown]
  - Rhinalgia [Unknown]
  - Altered state of consciousness [Unknown]
  - Oropharyngeal pain [Unknown]
  - Aphthous ulcer [Unknown]
  - Diarrhoea [Unknown]
  - Disorganised speech [Unknown]
  - Appetite disorder [Unknown]

NARRATIVE: CASE EVENT DATE: 20240101
